FAERS Safety Report 25940244 (Version 4)
Quarter: 2025Q4

REPORT INFORMATION
  Report Type: Spontaneous
  Country: US (occurrence: US)
  Receive Date: 20251020
  Receipt Date: 20251221
  Transmission Date: 20260118
  Serious: No
  Sender: PFIZER
  Company Number: US-PFIZER INC-202500204531

PATIENT
  Age: 28 Year
  Sex: Male
  Weight: 89.81 kg

DRUGS (2)
  1. BICILLIN L-A [Suspect]
     Active Substance: PENICILLIN G BENZATHINE
     Indication: Rheumatic fever
     Dosage: UNK
     Dates: start: 202403
  2. BICILLIN L-A [Suspect]
     Active Substance: PENICILLIN G BENZATHINE
     Dosage: 1 MILLION 200,000 UNITS PER 2 ML SYRINGE, EVERY 28 DAYS
     Route: 030
     Dates: start: 20250619, end: 20250619

REACTIONS (1)
  - Recalled product administered [Unknown]

NARRATIVE: CASE EVENT DATE: 20250619
